FAERS Safety Report 21390296 (Version 1)
Quarter: 2022Q3

REPORT INFORMATION
  Report Type: Spontaneous
  Country: US (occurrence: US)
  Receive Date: 20220929
  Receipt Date: 20220929
  Transmission Date: 20221027
  Serious: No
  Sender: FDA-Public Use
  Company Number: US-INDIVIOR US-INDV-133659-2022

PATIENT
  Age: 52 Year
  Sex: Female

DRUGS (2)
  1. PERSERIS [Suspect]
     Active Substance: RISPERIDONE
     Indication: Product used for unknown indication
     Dosage: 90 MILLIGRAM, QMO
     Route: 065
     Dates: start: 20220221
  2. PERSERIS [Suspect]
     Active Substance: RISPERIDONE
     Dosage: 90 MILLIGRAM, QMO

REACTIONS (1)
  - Product storage error [Recovered/Resolved]

NARRATIVE: CASE EVENT DATE: 20220319
